FAERS Safety Report 15369714 (Version 1)
Quarter: 2018Q3

REPORT INFORMATION
  Report Type: Spontaneous
  Country: US (occurrence: US)
  Receive Date: 20180904
  Receipt Date: 20180904
  Transmission Date: 20181010
  Serious: No
  Sender: FDA-Public Use
  Company Number: None

PATIENT
  Age: 57 Year
  Sex: Female
  Weight: 63 kg

DRUGS (1)
  1. XIIDRA [Suspect]
     Active Substance: LIFITEGRAST
     Indication: DRY EYE
     Dosage: ?          QUANTITY:1 DROP(S);?
     Route: 047
     Dates: start: 20161222, end: 20180731

REACTIONS (7)
  - Photophobia [None]
  - Dry eye [None]
  - Instillation site foreign body sensation [None]
  - Instillation site pain [None]
  - Instillation site pruritus [None]
  - Instillation site irritation [None]
  - Instillation site discomfort [None]

NARRATIVE: CASE EVENT DATE: 20180601
